FAERS Safety Report 23287621 (Version 1)
Quarter: 2023Q4

REPORT INFORMATION
  Report Type: Spontaneous
  Country: US (occurrence: US)
  Receive Date: 20231212
  Receipt Date: 20231212
  Transmission Date: 20240110
  Serious: Yes (Other)
  Sender: FDA-Public Use
  Company Number: US-ALEMBIC PHARMACUETICALS LIMITED-2023SCAL001187

PATIENT

DRUGS (1)
  1. AMANTADINE HYDROCHLORIDE [Suspect]
     Active Substance: AMANTADINE HYDROCHLORIDE
     Indication: Hereditary ataxia
     Dosage: UNK
     Route: 048

REACTIONS (7)
  - Encephalopathy [Recovering/Resolving]
  - Depressed level of consciousness [Unknown]
  - Withdrawal syndrome [Unknown]
  - Pyrexia [Recovering/Resolving]
  - Tachycardia [Recovering/Resolving]
  - Muscle rigidity [Unknown]
  - Mental status changes [Unknown]
